FAERS Safety Report 11255448 (Version 1)
Quarter: 2015Q3

REPORT INFORMATION
  Report Type: Spontaneous
  Country: US (occurrence: US)
  Receive Date: 20150709
  Receipt Date: 20150709
  Transmission Date: 20151125
  Serious: No
  Sender: FDA-Public Use
  Company Number: US-SA-2015SA080230

PATIENT
  Age: 62 Year
  Sex: Female

DRUGS (2)
  1. INSULIN BASAL [Concomitant]
     Active Substance: INSULIN NOS
  2. AFREZZA [Suspect]
     Active Substance: INSULIN HUMAN
     Dosage: DOSE:32 UNIT(S)
     Route: 055

REACTIONS (1)
  - Hyperglycaemia [Recovering/Resolving]
